FAERS Safety Report 8153783-1 (Version None)
Quarter: 2012Q1

REPORT INFORMATION
  Report Type: 
  Country: None (occurrence: None)
  Receive Date: 20120221
  Receipt Date: 20120213
  Transmission Date: 20120608
  Serious: Yes (Hospitalization)
  Sender: FDA-Public Use
  Company Number: JP-GLAXOSMITHKLINE-B0771968A

PATIENT
  Sex: Male

DRUGS (7)
  1. DOXORUBICIN HYDROCHLORIDE [Concomitant]
     Dosage: 90MG PER DAY
     Route: 042
     Dates: start: 20111209, end: 20111209
  2. ONCOVIN [Concomitant]
     Dosage: 2MG PER DAY
     Route: 042
     Dates: start: 20111209, end: 20111209
  3. ALKERAN [Suspect]
     Indication: CORD BLOOD TRANSPLANT THERAPY
     Dosage: 125MG PER DAY
     Route: 042
     Dates: start: 20111216, end: 20111217
  4. CYTARABINE [Concomitant]
     Indication: CORD BLOOD TRANSPLANT THERAPY
     Dosage: 3600MG PER DAY
     Route: 042
     Dates: start: 20111212, end: 20111215
  5. FLUDARA [Concomitant]
     Indication: CORD BLOOD TRANSPLANT THERAPY
     Dosage: 50MG PER DAY
     Route: 042
     Dates: start: 20111212, end: 20111217
  6. PROGRAF [Concomitant]
     Dosage: 2MG PER DAY
     Route: 042
     Dates: start: 20111219, end: 20111221
  7. SANDIMMUNE [Concomitant]
     Dosage: 100MG PER DAY
     Route: 042
     Dates: start: 20111221

REACTIONS (1)
  - VIRAL HAEMORRHAGIC CYSTITIS [None]
